FAERS Safety Report 8992656 (Version 1)
Quarter: 2013Q1

REPORT INFORMATION
  Report Type: Spontaneous
  Country: RU (occurrence: RU)
  Receive Date: 20130101
  Receipt Date: 20130101
  Transmission Date: 20140127
  Serious: Yes (Other)
  Sender: FDA-Public Use
  Company Number: RU-UCBSA-044530

PATIENT
  Age: 27 Year
  Sex: Female
  Weight: 64 kg

DRUGS (3)
  1. KEPPRA [Suspect]
     Indication: JUVENILE MYOCLONIC EPILEPSY
     Route: 048
     Dates: start: 20100902
  2. KEPPRA [Suspect]
     Indication: EPILEPSY
     Route: 048
     Dates: start: 20100902
  3. NO CONCOMITANT MEDICATION [Concomitant]

REACTIONS (2)
  - Umbilical cord abnormality [Unknown]
  - Pregnancy [Unknown]
